FAERS Safety Report 9275293 (Version 3)
Quarter: 2013Q2

REPORT INFORMATION
  Report Type: Report from Study
  Country: US (occurrence: US)
  Receive Date: 20130507
  Receipt Date: 20130523
  Transmission Date: 20140414
  Serious: Yes (Hospitalization)
  Sender: FDA-Public Use
  Company Number: US-PFIZER INC-2013138746

PATIENT
  Age: 80 Year
  Sex: Female
  Weight: 78 kg

DRUGS (9)
  1. CRIZOTINIB [Suspect]
     Indication: NON-SMALL CELL LUNG CANCER
     Dosage: 200 MG, 2X/DAY
     Route: 048
     Dates: start: 20130315
  2. ALDACTONE [Suspect]
     Indication: OEDEMA
     Dosage: 25 MG, QD
     Route: 048
     Dates: start: 2012
  3. BUMEX [Suspect]
     Indication: OEDEMA
     Dosage: 1 MG, QD
     Route: 048
     Dates: start: 20130423
  4. AUGMENTIN [Suspect]
     Indication: PNEUMONIA
     Dosage: MOST RECENT DOSE: 01MAY2013; 500/125 MG, FREQUENCY: BID
     Route: 048
     Dates: start: 20130430, end: 20130501
  5. AUGMENTIN [Suspect]
     Indication: DYSPNOEA
  6. ZOFRAN [Concomitant]
     Indication: NAUSEA
     Dosage: 4 MG, BID PRN WITH CRIZOTINIB
     Route: 048
     Dates: start: 2011
  7. SYNTHROID [Concomitant]
     Indication: HYPOTHYROIDISM
     Dosage: 0.05 MG, 2X/DAY
     Route: 048
     Dates: start: 20120706
  8. LIPITOR [Concomitant]
     Indication: HYPERLIPIDAEMIA
     Dosage: 10 MG, QD
     Route: 048
     Dates: start: 20130319
  9. LOVENOX [Concomitant]
     Indication: DEEP VEIN THROMBOSIS
     Dosage: 60 MG, 2X/DAY
     Route: 058
     Dates: start: 20130418

REACTIONS (1)
  - Dehydration [Recovered/Resolved]
